FAERS Safety Report 5729407-7 (Version None)
Quarter: 2008Q2

REPORT INFORMATION
  Report Type: 
  Country: None (occurrence: None)
  Receive Date: 20080506
  Receipt Date: 20080427
  Transmission Date: 20081010
  Serious: No
  Sender: FDA-Public Use
  Company Number: US-BAXTER-2008BH004457

PATIENT
  Age: 26 Year
  Sex: Female
  Weight: 66 kg

DRUGS (3)
  1. HEPARIN SODIUM [Suspect]
     Indication: COAGULOPATHY
     Route: 058
     Dates: start: 20070601, end: 20080201
  2. LABETALOL HCL [Concomitant]
     Indication: DRUG USE FOR UNKNOWN INDICATION
     Dosage: DOSE UNIT:UNKNOWN
     Route: 065
  3. ASPIRIN [Concomitant]
     Indication: DRUG USE FOR UNKNOWN INDICATION
     Route: 048

REACTIONS (7)
  - CHEST PAIN [None]
  - DIZZINESS [None]
  - DRUG EXPOSURE DURING PREGNANCY [None]
  - DYSPNOEA [None]
  - HEADACHE [None]
  - HEART RATE INCREASED [None]
  - RESTLESSNESS [None]
